FAERS Safety Report 9461209 (Version 1)
Quarter: 2013Q3

REPORT INFORMATION
  Report Type: Spontaneous
  Country: US (occurrence: None)
  Receive Date: 20130814
  Receipt Date: 20130814
  Transmission Date: 20140515
  Serious: No
  Sender: FDA-Public Use
  Company Number: None

PATIENT
  Age: 78 Year
  Sex: Male
  Weight: 82.1 kg

DRUGS (11)
  1. HYDROCORTISONE CREAM USP [Suspect]
     Indication: PRURITUS
     Dosage: CREAM APPLIED TO ARMS + LEGS  2-4 TIMES DAILY AS NEEDED ON THE SKIN
     Route: 061
     Dates: start: 2007, end: 20130701
  2. ALPRAZOLAM [Concomitant]
  3. CARDURA [Concomitant]
  4. CYMBALTA [Concomitant]
  5. GABAPENTIN [Concomitant]
  6. LISINOPRIL [Concomitant]
  7. LOVASTATIN [Concomitant]
  8. METOPROLOL TARTRATE [Concomitant]
  9. ASPIRIN [Concomitant]
  10. MELATONIN [Concomitant]
  11. SENOKOT [Concomitant]

REACTIONS (2)
  - Drug ineffective [None]
  - Product substitution issue [None]
